FAERS Safety Report 8414745-X (Version None)
Quarter: 2012Q2

REPORT INFORMATION
  Report Type: 
  Country: None (occurrence: None)
  Receive Date: 20120605
  Receipt Date: 20120601
  Transmission Date: 20120825
  Serious: Yes (Hospitalization)
  Sender: FDA-Public Use
  Company Number: US-AMGEN-USASP2012034573

PATIENT
  Age: 50 Year
  Sex: Female

DRUGS (2)
  1. NEULASTA [Suspect]
     Indication: NEUTROPENIA
     Dosage: 6 MG, Q2WK
     Dates: start: 20110301
  2. ANTINEOPLASTIC AGENTS [Concomitant]

REACTIONS (6)
  - SEPSIS [None]
  - MALAISE [None]
  - SEROMA [None]
  - SOFT TISSUE NECROSIS [None]
  - SOFT TISSUE INFECTION [None]
  - OSTEONECROSIS [None]
